FAERS Safety Report 8533156-X (Version None)
Quarter: 2012Q3

REPORT INFORMATION
  Report Type: 
  Country: None (occurrence: None)
  Receive Date: 20120724
  Receipt Date: 20120713
  Transmission Date: 20120928
  Serious: Yes (Hospitalization)
  Sender: FDA-Public Use
  Company Number: JP-AMGEN-JPNCT2012045321

PATIENT
  Age: 87 Year
  Sex: Male

DRUGS (11)
  1. DARBEPOETIN ALFA - KHK [Suspect]
     Dosage: 60 MUG, UNK
     Route: 058
     Dates: start: 20110912, end: 20110912
  2. DARBEPOETIN ALFA - KHK [Suspect]
     Dosage: 60 MUG, UNK
     Route: 058
     Dates: start: 20111225
  3. URIEF [Concomitant]
     Dosage: UNK
  4. DARBEPOETIN ALFA - KHK [Suspect]
     Indication: NEPHROGENIC ANAEMIA
     Dosage: 60 MUG, UNK
     Route: 058
     Dates: start: 20110623, end: 20110623
  5. ISOSORBIDE DINITRATE [Concomitant]
     Dosage: UNK
  6. DARBEPOETIN ALFA - KHK [Suspect]
     Dosage: 60 MUG, UNK
     Route: 058
     Dates: start: 20111013, end: 20111013
  7. ASPIRIN [Concomitant]
     Dosage: UNK
  8. UBRETID [Concomitant]
     Dosage: UNK
  9. DARBEPOETIN ALFA - KHK [Suspect]
     Dosage: 60 MUG, UNK
     Route: 058
     Dates: start: 20110729, end: 20110729
  10. ALLOPURINOL [Concomitant]
     Dosage: UNK
  11. LASIX [Concomitant]
     Dosage: UNK

REACTIONS (1)
  - CARDIAC FAILURE [None]
